FAERS Safety Report 13249035 (Version 1)
Quarter: 2017Q1

REPORT INFORMATION
  Report Type: Spontaneous
  Country: US (occurrence: US)
  Receive Date: 20170218
  Receipt Date: 20170218
  Transmission Date: 20170428
  Serious: No
  Sender: FDA-Public Use
  Company Number: US-ALLERGAN-1652425US

PATIENT
  Sex: Female

DRUGS (2)
  1. RESTASIS [Suspect]
     Active Substance: CYCLOSPORINE
     Indication: PRODUCT USED FOR UNKNOWN INDICATION
     Dosage: 5 MG/KG, QD
     Route: 065
  2. RESTASIS [Interacting]
     Active Substance: CYCLOSPORINE
     Dosage: 4 MG/KG, QD
     Route: 065

REACTIONS (7)
  - Hepatic pain [Unknown]
  - Drug interaction [Unknown]
  - Hepatic enzyme increased [Unknown]
  - Vomiting [Unknown]
  - Blood bilirubin increased [Unknown]
  - Nausea [Unknown]
  - Toxicity to various agents [Unknown]
